FAERS Safety Report 7141513-1 (Version None)
Quarter: 2010Q4

REPORT INFORMATION
  Report Type: 
  Country: None (occurrence: None)
  Receive Date: 20101126
  Receipt Date: 20101111
  Transmission Date: 20110411
  Serious: Yes (Hospitalization)
  Sender: FDA-Public Use
  Company Number: 1000017156

PATIENT
  Age: 47 Year
  Sex: Female

DRUGS (5)
  1. DILTIAZEM HCL [Suspect]
  2. DILTIAZEM HCL [Suspect]
  3. VALSARTAN AND HYDROCHLOROTHIAZIDE [Suspect]
  4. VALSARTAN AND HYDROCHLOROTHIAZIDE [Suspect]
  5. GLYBURIDE [Suspect]
     Indication: DIABETES MELLITUS

REACTIONS (1)
  - ACUTE GENERALISED EXANTHEMATOUS PUSTULOSIS [None]
